FAERS Safety Report 10436638 (Version 1)
Quarter: 2014Q3

REPORT INFORMATION
  Report Type: Spontaneous
  Country: US (occurrence: US)
  Receive Date: 20140908
  Receipt Date: 20140908
  Transmission Date: 20150326
  Serious: No
  Sender: FDA-Public Use
  Company Number: US-BRISTOL-MYERS SQUIBB COMPANY-20241618

PATIENT
  Age: 38 Year
  Sex: Female
  Weight: 116.55 kg

DRUGS (1)
  1. ABILIFY [Suspect]
     Active Substance: ARIPIPRAZOLE
     Indication: BIPOLAR I DISORDER
     Dosage: STARTING DOSE : 5 MG FOR 7 DAYS?CONCURRENT DOSE : 10 MG

REACTIONS (2)
  - Headache [Recovering/Resolving]
  - Vomiting [Unknown]
